FAERS Safety Report 9739935 (Version 3)
Quarter: 2014Q1

REPORT INFORMATION
  Report Type: Spontaneous
  Country: US (occurrence: US)
  Receive Date: 20131209
  Receipt Date: 20140116
  Transmission Date: 20141002
  Serious: Yes (Hospitalization)
  Sender: FDA-Public Use
  Company Number: US-ASTELLAS-2013US012209

PATIENT
  Age: 72 Year
  Sex: Male
  Weight: 86 kg

DRUGS (1)
  1. XTANDI [Suspect]
     Indication: PROSTATE CANCER METASTATIC
     Dosage: 160 MG, UID/QD
     Route: 048
     Dates: start: 20130627, end: 20130915

REACTIONS (4)
  - Diverticulitis [Unknown]
  - Gastrointestinal haemorrhage [Unknown]
  - Pain [Recovering/Resolving]
  - Prostatic specific antigen increased [Unknown]
